FAERS Safety Report 14748013 (Version 6)
Quarter: 2019Q2

REPORT INFORMATION
  Report Type: Spontaneous
  Country: DE (occurrence: DE)
  Receive Date: 20180411
  Receipt Date: 20190417
  Transmission Date: 20190711
  Serious: Yes (Congenital Anomaly, Other)
  Sender: FDA-Public Use
  Company Number: PHHY2018DE059059

PATIENT
  Sex: Male
  Weight: 3.05 kg

DRUGS (5)
  1. DICLOFENAC [Suspect]
     Active Substance: DICLOFENAC
     Indication: FOETAL EXPOSURE DURING PREGNANCY
     Dosage: UNK
     Route: 064
  2. AMPICILLIN [Suspect]
     Active Substance: AMPICILLIN
     Indication: FOETAL EXPOSURE DURING PREGNANCY
     Dosage: UNK
     Route: 064
  3. SULBACTAM [Suspect]
     Active Substance: SULBACTAM
     Dosage: UNK
     Route: 064
  4. PSEUDOEPHEDRINE. [Suspect]
     Active Substance: PSEUDOEPHEDRINE HYDROCHLORIDE
     Indication: FOETAL EXPOSURE DURING PREGNANCY
     Dosage: UNK
     Route: 064
  5. SULBACTAM [Suspect]
     Active Substance: SULBACTAM
     Indication: FOETAL EXPOSURE DURING PREGNANCY
     Dosage: UNK
     Route: 064

REACTIONS (3)
  - Cardiac septal defect [Unknown]
  - Kidney duplex [Unknown]
  - Foetal exposure during pregnancy [Unknown]
